FAERS Safety Report 9644004 (Version 1)
Quarter: 2013Q4

REPORT INFORMATION
  Report Type: Spontaneous
  Country: ES (occurrence: None)
  Receive Date: 20131023
  Receipt Date: 20131023
  Transmission Date: 20140711
  Serious: Yes (Other)
  Sender: FDA-Public Use
  Company Number: B0932704A

PATIENT
  Age: 84 Year
  Sex: Female

DRUGS (3)
  1. ONDANSETRON HYDROCHLORIDE [Suspect]
     Indication: NAUSEA
  2. MIRTAZAPINE [Suspect]
     Indication: INSOMNIA
  3. DOMPERIDONE [Concomitant]

REACTIONS (6)
  - Inhibitory drug interaction [None]
  - Nausea [None]
  - Vertigo [None]
  - Vomiting [None]
  - Diplopia [None]
  - Cerebellar haemorrhage [None]
